FAERS Safety Report 24342880 (Version 1)
Quarter: 2024Q3

REPORT INFORMATION
  Report Type: Report from Study
  Country: US (occurrence: US)
  Receive Date: 20240920
  Receipt Date: 20240920
  Transmission Date: 20241017
  Serious: Yes (Other)
  Sender: TAKEDA
  Company Number: US-TAKEDA-US201933370

PATIENT
  Age: 42 Year
  Sex: Male

DRUGS (2)
  1. RECOMBINATE [Suspect]
     Active Substance: ANTIHEMOPHILIC FACTOR, HUMAN RECOMBINANT
     Indication: Product used for unknown indication
     Dosage: 3772 INTERNATIONAL UNIT
     Route: 042
  2. RECOMBINATE [Suspect]
     Active Substance: ANTIHEMOPHILIC FACTOR, HUMAN RECOMBINANT
     Dosage: 4720 INTERNATIONAL UNIT
     Route: 050

REACTIONS (3)
  - Tooth socket haemorrhage [Unknown]
  - Arthralgia [Recovered/Resolved]
  - Loose tooth [Unknown]

NARRATIVE: CASE EVENT DATE: 20190927
